FAERS Safety Report 14776870 (Version 1)
Quarter: 2018Q2

REPORT INFORMATION
  Report Type: Spontaneous
  Country: HU (occurrence: HU)
  Receive Date: 20180419
  Receipt Date: 20180419
  Transmission Date: 20180711
  Serious: Yes (Other)
  Sender: FDA-Public Use
  Company Number: HU-ACCORD-065912

PATIENT
  Age: 59 Year
  Sex: Female

DRUGS (2)
  1. GEMCITABINE/GEMCITABINE HYDROCHLORIDE [Suspect]
     Active Substance: GEMCITABINE\GEMCITABINE HYDROCHLORIDE
     Indication: BILE DUCT ADENOCARCINOMA
  2. CISPLATIN. [Suspect]
     Active Substance: CISPLATIN
     Indication: BILE DUCT ADENOCARCINOMA

REACTIONS (1)
  - Malignant neoplasm progression [Recovering/Resolving]
